FAERS Safety Report 23419620 (Version 1)
Quarter: 2024Q1

REPORT INFORMATION
  Report Type: Spontaneous
  Country: JP (occurrence: JP)
  Receive Date: 20240118
  Receipt Date: 20240118
  Transmission Date: 20240410
  Serious: Yes (Death, Other)
  Sender: FDA-Public Use
  Company Number: JP-BAXTER-2024BAX010306

PATIENT
  Age: 9 Decade
  Sex: Female

DRUGS (1)
  1. REGUNEAL LCA [Suspect]
     Active Substance: CALCIUM CHLORIDE\DEXTROSE MONOHYDRATE\HYDROCHLORIC ACID\MAGNESIUM CHLORIDE\SODIUM BICARBONATE\SODIUM
     Route: 033

REACTIONS (8)
  - Multiple organ dysfunction syndrome [Fatal]
  - Blood pressure abnormal [Fatal]
  - Blood glucose abnormal [Fatal]
  - Hypopnoea [Fatal]
  - Bradycardia [Fatal]
  - Blood pressure decreased [Fatal]
  - General physical health deterioration [Fatal]
  - Therapy interrupted [Recovered/Resolved]

NARRATIVE: CASE EVENT DATE: 20240107
